FAERS Safety Report 6111723-0 (Version None)
Quarter: 2009Q1

REPORT INFORMATION
  Report Type: 
  Country: None (occurrence: None)
  Receive Date: 20090311
  Receipt Date: 20090306
  Transmission Date: 20090719
  Serious: Yes (Hospitalization)
  Sender: FDA-Public Use
  Company Number: US-GILEAD-2009-0020741

PATIENT
  Sex: Female
  Weight: 90.8 kg

DRUGS (17)
  1. LETAIRIS [Suspect]
     Indication: PULMONARY ARTERIAL HYPERTENSION
     Route: 048
     Dates: start: 20080208
  2. PLAVIX [Concomitant]
  3. ASPIRIN [Concomitant]
  4. IMDUR [Concomitant]
  5. TOPROL-XL [Concomitant]
  6. RANEXA [Concomitant]
  7. LASIX [Concomitant]
  8. LOVASTATIN [Concomitant]
  9. VYTORIN [Concomitant]
  10. POTASSIUM CHLORIDE [Concomitant]
  11. HUMALOG [Concomitant]
  12. PAXIL [Concomitant]
  13. GLUCOPHAGE XR [Concomitant]
  14. ACTOS [Concomitant]
  15. ARANESP [Concomitant]
  16. IRON [Concomitant]
  17. PRILOSEC [Concomitant]

REACTIONS (1)
  - CARDIAC OPERATION [None]
